FAERS Safety Report 16878316 (Version 2)
Quarter: 2020Q1

REPORT INFORMATION
  Report Type: Report from Study
  Country: US (occurrence: US)
  Receive Date: 20191002
  Receipt Date: 20200317
  Transmission Date: 20200409
  Serious: No
  Sender: FDA-Public Use
  Company Number: US-INCYTE CORPORATION-2019IN009332

PATIENT

DRUGS (18)
  1. PEGASYS [Concomitant]
     Active Substance: PEGINTERFERON ALFA-2A
     Dosage: 225 MICROGRAM, WEEKLY
     Route: 065
     Dates: start: 20171227, end: 20180123
  2. PEGASYS [Concomitant]
     Active Substance: PEGINTERFERON ALFA-2A
     Dosage: 90 MICROGRAM, WEEKLY
     Route: 065
     Dates: start: 20180627, end: 20180815
  3. PEGASYS [Concomitant]
     Active Substance: PEGINTERFERON ALFA-2A
     Dosage: 180 MICROGRAM, WEEKLY
     Route: 065
     Dates: start: 20170202, end: 20170815
  4. JAKAFI [Suspect]
     Active Substance: RUXOLITINIB
     Dosage: 5 MILLIGRAM, BID
     Route: 065
     Dates: start: 20190319, end: 20190417
  5. PEGASYS [Concomitant]
     Active Substance: PEGINTERFERON ALFA-2A
     Dosage: 135 MICROGRAM, WEEKLY
     Route: 065
     Dates: start: 20160721, end: 20170201
  6. PEGASYS [Concomitant]
     Active Substance: PEGINTERFERON ALFA-2A
     Dosage: 180 MICROGRAM, WEEKLY
     Route: 065
     Dates: start: 20180124, end: 20180214
  7. PEGASYS [Concomitant]
     Active Substance: PEGINTERFERON ALFA-2A
     Dosage: 45 MICROGRAM, WEEKLY
     Route: 065
     Dates: start: 20151225, end: 20160315
  8. PEGASYS [Concomitant]
     Active Substance: PEGINTERFERON ALFA-2A
     Dosage: 90 MICROGRAM, WEEKLY
     Route: 065
     Dates: start: 20160316, end: 20160608
  9. JAKAFI [Suspect]
     Active Substance: RUXOLITINIB
     Indication: POLYCYTHAEMIA VERA
     Dosage: 10 MILLIGRAM, BID
     Route: 065
     Dates: start: 20180613, end: 20190115
  10. PEGASYS [Concomitant]
     Active Substance: PEGINTERFERON ALFA-2A
     Dosage: 135 MICROGRAM, 2X/MONTH
     Route: 065
     Dates: start: 20160609, end: 20160720
  11. JAKAFI [Suspect]
     Active Substance: RUXOLITINIB
     Dosage: 5 MILLIGRAM, QD
     Route: 065
     Dates: start: 20190219, end: 20190301
  12. PEGASYS [Concomitant]
     Active Substance: PEGINTERFERON ALFA-2A
     Dosage: 180 MICROGRAM, WEEKLY
     Route: 065
     Dates: start: 20180816
  13. PEGASYS [Concomitant]
     Active Substance: PEGINTERFERON ALFA-2A
     Dosage: 90 MICROGRAM, 2X/MONTH
     Route: 065
     Dates: start: 20160609, end: 20160720
  14. ASPIRIN                            /00002701/ [Concomitant]
     Active Substance: ASPIRIN
     Indication: POLYCYTHAEMIA VERA
     Dosage: 81 MILLIGRAM, QD
     Route: 065
     Dates: start: 20151222
  15. PEGASYS [Concomitant]
     Active Substance: PEGINTERFERON ALFA-2A
     Indication: POLYCYTHAEMIA VERA
     Dosage: 180 MICROGRAM, WEEKLY
     Route: 065
     Dates: start: 20170816, end: 20171226
  16. JAKAFI [Suspect]
     Active Substance: RUXOLITINIB
     Dosage: 5 MILLIGRAM, BID
     Route: 065
     Dates: start: 20190116, end: 20190218
  17. JAKAFI [Suspect]
     Active Substance: RUXOLITINIB
     Dosage: 10 MILLIGRAM, BID
     Route: 065
     Dates: start: 20190417
  18. PEGASYS [Concomitant]
     Active Substance: PEGINTERFERON ALFA-2A
     Dosage: 135 MICROGRAM, WEEKLY
     Route: 065
     Dates: start: 20170518, end: 20170815

REACTIONS (9)
  - Polycythaemia [Not Recovered/Not Resolved]
  - Influenza like illness [Recovered/Resolved]
  - Dyspnoea exertional [Not Recovered/Not Resolved]
  - Pruritus [Recovered/Resolved]
  - Splenomegaly [Recovered/Resolved]
  - Microcytic anaemia [Not Recovered/Not Resolved]
  - Fatigue [Recovered/Resolved]
  - Headache [Recovered/Resolved]
  - Rhinitis [Recovered/Resolved]

NARRATIVE: CASE EVENT DATE: 20180214
